FAERS Safety Report 6198178-5 (Version None)
Quarter: 2009Q2

REPORT INFORMATION
  Report Type: 
  Country: None (occurrence: None)
  Receive Date: 20090521
  Receipt Date: 20090511
  Transmission Date: 20091009
  Serious: Yes (Hospitalization)
  Sender: FDA-Public Use
  Company Number: BE-PFIZER INC-2009181462

PATIENT
  Age: 59 Year

DRUGS (9)
  1. MARAVIROC [Suspect]
     Indication: HIV INFECTION
     Dosage: UNK
     Route: 048
     Dates: start: 20051117
  2. RITONAVIR [Concomitant]
     Dosage: UNK
     Route: 048
  3. TIPRANAVIR [Concomitant]
     Dosage: UNK
     Route: 048
  4. DIDANOSINE [Concomitant]
     Dosage: UNK
     Route: 048
  5. RALTEGRAVIR [Concomitant]
     Dosage: UNK
     Route: 048
  6. LAMIVUDINE [Concomitant]
     Dosage: UNK
     Route: 048
  7. LOSFERRON [Concomitant]
     Route: 048
  8. OMACOR [Concomitant]
     Dosage: UNK
     Route: 048
  9. LIPANTHYL [Concomitant]
     Dosage: UNK
     Route: 048

REACTIONS (1)
  - MYCOBACTERIAL INFECTION [None]
